FAERS Safety Report 15850364 (Version 2)
Quarter: 2019Q4

REPORT INFORMATION
  Report Type: Spontaneous
  Country: CA (occurrence: CA)
  Receive Date: 20190121
  Receipt Date: 20191120
  Transmission Date: 20200122
  Serious: Yes (Hospitalization)
  Sender: FDA-Public Use
  Company Number: CA-TEVA-2019-CA-999551

PATIENT

DRUGS (1)
  1. NOVAMOXIN [Suspect]
     Active Substance: AMOXICILLIN
     Indication: EAR INFECTION
     Route: 065

REACTIONS (5)
  - Myalgia [Unknown]
  - Arthralgia [Unknown]
  - Rash [Unknown]
  - Serum sickness [Unknown]
  - Swelling [Unknown]
